FAERS Safety Report 5203647-8 (Version None)
Quarter: 2007Q1

REPORT INFORMATION
  Report Type: 
  Country: None (occurrence: None)
  Receive Date: 20070105
  Receipt Date: 20061222
  Transmission Date: 20070707
  Serious: Yes (Other)
  Sender: FDA-Public Use
  Company Number: 2006S1007068

PATIENT
  Age: 68 Year
  Sex: Female

DRUGS (8)
  1. CITALOPRAM HYDROBROMIDE [Suspect]
     Indication: DEPRESSION
     Dosage: 10 MG; QD; PO
     Route: 048
     Dates: start: 20040101
  2. METHOTREXATE [Suspect]
     Indication: RHEUMATOID ARTHRITIS
  3. CLOPIDOGREL [Concomitant]
  4. RAMIPRIL [Concomitant]
  5. LANSOPRAZOLE [Concomitant]
  6. METOPROLOL SUCCINATE [Concomitant]
  7. ATORVASTATIN CALCIUM [Concomitant]
  8. LORAZEPAM [Concomitant]

REACTIONS (2)
  - BLOOD AMYLASE INCREASED [None]
  - LIPASE INCREASED [None]
